FAERS Safety Report 14141540 (Version 1)
Quarter: 2017Q4

REPORT INFORMATION
  Report Type: Spontaneous
  Country: US (occurrence: US)
  Receive Date: 20171028
  Receipt Date: 20171028
  Transmission Date: 20180321
  Serious: No
  Sender: FDA-Public Use
  Company Number: None

PATIENT
  Age: 38 Year
  Sex: Female
  Weight: 72.9 kg

DRUGS (4)
  1. FROVATRYPTAN [Concomitant]
  2. BOTOX [Concomitant]
     Active Substance: ONABOTULINUMTOXINA
  3. MIRENA [Suspect]
     Active Substance: LEVONORGESTREL
     Indication: CONTRACEPTION
     Dates: start: 20160610, end: 20171024
  4. MULTIVITAMIN [Concomitant]
     Active Substance: VITAMINS

REACTIONS (16)
  - Suicidal ideation [None]
  - Premenstrual syndrome [None]
  - Fatigue [None]
  - Depression [None]
  - Depressed level of consciousness [None]
  - Muscle spasms [None]
  - Weight increased [None]
  - Migraine [None]
  - Anger [None]
  - Breast pain [None]
  - Abdominal distension [None]
  - Anosmia [None]
  - Condition aggravated [None]
  - Loss of libido [None]
  - Sensory loss [None]
  - Ageusia [None]

NARRATIVE: CASE EVENT DATE: 20170924
